FAERS Safety Report 6904829-7 (Version None)
Quarter: 2010Q3

REPORT INFORMATION
  Report Type: 
  Country: None (occurrence: None)
  Receive Date: 20100804
  Receipt Date: 20090716
  Transmission Date: 20110219
  Serious: Yes (Other)
  Sender: FDA-Public Use
  Company Number: US-PFIZER INC-2009226830

PATIENT
  Sex: Female

DRUGS (3)
  1. LYRICA [Suspect]
     Indication: ORAL PAIN
     Dosage: UNK
     Route: 048
     Dates: start: 20090501
  2. LYRICA [Suspect]
     Indication: TRIGEMINAL NEURALGIA
     Dosage: 50 MG, 3X/DAY
     Route: 048
     Dates: end: 20090610
  3. ZYRTEC [Concomitant]
     Dosage: UNK

REACTIONS (4)
  - ASTHENIA [None]
  - MALAISE [None]
  - NAUSEA [None]
  - VOMITING [None]
